FAERS Safety Report 20643145 (Version 4)
Quarter: 2022Q4

REPORT INFORMATION
  Report Type: Spontaneous
  Country: DE (occurrence: DE)
  Receive Date: 20220328
  Receipt Date: 20221202
  Transmission Date: 20230113
  Serious: Yes (Other)
  Sender: FDA-Public Use
  Company Number: DE-NOVARTISPH-NVSC2022DE067364

PATIENT
  Age: 47 Year
  Sex: Female
  Weight: 53 kg

DRUGS (8)
  1. KESIMPTA [Suspect]
     Active Substance: OFATUMUMAB
     Indication: Secondary progressive multiple sclerosis
     Dosage: MOST RECENT DOSE RECEIVED ON 14/FEB/2022
     Route: 065
     Dates: start: 20211108
  2. OCRELIZUMAB [Suspect]
     Active Substance: OCRELIZUMAB
     Indication: Secondary progressive multiple sclerosis
     Dosage: 300 MG
     Route: 042
     Dates: start: 20180920, end: 20181004
  3. OCRELIZUMAB [Suspect]
     Active Substance: OCRELIZUMAB
     Dosage: MOST RECENT DOSE PRIOR TO AE 03/MAY/2021
     Route: 042
     Dates: start: 20190415, end: 20210503
  4. TIZANIDINE [Concomitant]
     Active Substance: TIZANIDINE
     Indication: Muscle spasticity
     Dosage: 2 MG
     Route: 065
     Dates: start: 20190923
  5. NABIXIMOLS [Concomitant]
     Active Substance: NABIXIMOLS
     Indication: Muscle spasticity
     Dosage: 25 MG
     Route: 065
     Dates: start: 20191007, end: 20200415
  6. CARBAMAZEPINE [Concomitant]
     Active Substance: CARBAMAZEPINE
     Indication: Trigeminal neuralgia
     Dosage: 200 MG
     Route: 065
     Dates: start: 20211025
  7. PREGABALIN [Concomitant]
     Active Substance: PREGABALIN
     Indication: Trigeminal neuralgia
     Dosage: 25 MG, TID
     Route: 065
     Dates: start: 20211108
  8. DRONABINOL [Concomitant]
     Active Substance: DRONABINOL
     Indication: Muscle spasticity
     Dosage: 2.5 MG
     Route: 065
     Dates: start: 20200504

REACTIONS (6)
  - Pneumonia [Recovering/Resolving]
  - Pneumonia [Recovered/Resolved]
  - Urinary tract infection [Recovered/Resolved]
  - Urinary tract infection [Recovering/Resolving]
  - Urinary tract infection [Recovering/Resolving]
  - Respiratory failure [Recovering/Resolving]

NARRATIVE: CASE EVENT DATE: 20190804
